FAERS Safety Report 11703068 (Version 4)
Quarter: 2016Q1

REPORT INFORMATION
  Report Type: Report from Study
  Country: CO (occurrence: CO)
  Receive Date: 20151105
  Receipt Date: 20160128
  Transmission Date: 20160525
  Serious: Yes (Death, Life-Threatening, Other)
  Sender: FDA-Public Use
  Company Number: PHHY2015CO133547

PATIENT
  Age: 71 Year
  Sex: Female
  Weight: 42 kg

DRUGS (5)
  1. OXYCODONE [Concomitant]
     Active Substance: OXYCODONE
     Indication: PRODUCT USED FOR UNKNOWN INDICATION
     Route: 065
  2. METOCLOPRAMIDE. [Concomitant]
     Active Substance: METOCLOPRAMIDE
     Indication: VOMITING
     Route: 065
  3. VOTRIENT [Suspect]
     Active Substance: PAZOPANIB HYDROCHLORIDE
     Indication: RENAL CANCER STAGE IV
     Dosage: 400 MG, ONE IN MORNING AND ONE AT NIGHT
     Route: 048
     Dates: start: 20150801, end: 20151022
  4. VOTRIENT [Suspect]
     Active Substance: PAZOPANIB HYDROCHLORIDE
     Indication: RENAL CANCER METASTATIC
     Dosage: UNK MG, UNK
     Route: 048
     Dates: start: 201506
  5. ACETAMINOPHEN. [Concomitant]
     Active Substance: ACETAMINOPHEN
     Indication: PAIN
     Route: 065

REACTIONS (10)
  - Weight increased [Unknown]
  - Stomatitis [Unknown]
  - Apnoea [Fatal]
  - Gait disturbance [Unknown]
  - Diarrhoea [Unknown]
  - Dyspnoea [Fatal]
  - White blood cell count abnormal [Unknown]
  - Decubitus ulcer [Recovering/Resolving]
  - Spinal fracture [Unknown]
  - Eating disorder [Unknown]

NARRATIVE: CASE EVENT DATE: 20150903
